FAERS Safety Report 7551334-3 (Version None)
Quarter: 2011Q2

REPORT INFORMATION
  Report Type: 
  Country: None (occurrence: None)
  Receive Date: 20110616
  Receipt Date: 20110531
  Transmission Date: 20111010
  Serious: Yes (Disabling, Other)
  Sender: FDA-Public Use
  Company Number: DK-BAYER-201044655GPV

PATIENT
  Sex: Female

DRUGS (27)
  1. GADOLINIUM IN UNSPECIFIED DRUG [Suspect]
     Indication: ANGIOGRAM
     Dosage: UNK
     Dates: start: 20020101, end: 20020101
  2. PONDOCILLIN [Concomitant]
     Dates: start: 20001030
  3. SODIUM BICARBONATE [Concomitant]
     Dates: start: 20001030
  4. METOPROLOL SUCCINATE [Concomitant]
     Dates: start: 20001030
  5. CYCLOSPORINE [Concomitant]
     Dates: start: 20001030
  6. PREDNISOLONE [Concomitant]
     Dates: start: 20000229
  7. ACTRAPID [Concomitant]
     Dosage: 6 + 16 + 16 IU
     Dates: start: 20000229
  8. CITALOPRAM HYDROBROMIDE [Concomitant]
     Dates: start: 20001030
  9. MAGNEVIST [Suspect]
     Indication: SCAN WITH CONTRAST
     Dates: start: 20020101
  10. DIURAL [Concomitant]
     Dates: start: 20001030
  11. TRAMADOL HCL [Concomitant]
     Dates: start: 20000229
  12. GADOLINIUM IN UNSPECIFIED DRUG [Suspect]
     Indication: IMAGING PROCEDURE
     Dosage: 40 ML, ONCE
  13. ASPIRIN [Concomitant]
     Dates: start: 20001030
  14. INSULATARD [Concomitant]
     Dates: start: 20000229
  15. CALCIUM CARBONATE [Concomitant]
     Dates: start: 20001030
  16. ETALPHA [Concomitant]
     Dates: start: 20001030
  17. OMNISCAN [Suspect]
     Indication: NUCLEAR MAGNETIC RESONANCE IMAGING
  18. DIURAL [Concomitant]
     Dosage: 120 + 80 MG
     Dates: start: 20000229
  19. SODIUM POLYSTYRENE SULFONATE [Concomitant]
     Dosage: NON-DIALYSIS DAY
  20. SANDIMMUNE [Concomitant]
     Dates: start: 20000229
  21. PREDNISOLONE [Concomitant]
     Dates: start: 20001030
  22. ADALAT [Concomitant]
     Dates: start: 20001030
  23. FERRO DURETTER [Concomitant]
     Dates: start: 20001030
  24. RAMACE [Concomitant]
     Dates: start: 20000229
  25. ASPIRIN [Concomitant]
     Dates: start: 20000229
  26. PERSANTIN [Concomitant]
     Dates: start: 20000229
  27. EPREX [Concomitant]
     Route: 058
     Dates: start: 20001030

REACTIONS (4)
  - NEPHROGENIC SYSTEMIC FIBROSIS [None]
  - JOINT STIFFNESS [None]
  - GAIT DISTURBANCE [None]
  - SKIN HYPERTROPHY [None]
